FAERS Safety Report 23061054 (Version 1)
Quarter: 2023Q4

REPORT INFORMATION
  Report Type: Report from Study
  Country: US (occurrence: US)
  Receive Date: 20231013
  Receipt Date: 20231013
  Transmission Date: 20240110
  Serious: Yes (Hospitalization, Other)
  Sender: FDA-Public Use
  Company Number: US-ABBVIE-5324702

PATIENT
  Sex: Male

DRUGS (2)
  1. SKYRIZI [Suspect]
     Active Substance: RISANKIZUMAB-RZAA
     Indication: Psoriasis
     Dosage: DOSAGE: 150 MG/ML WEEK FOUR?FORM STRENGTH:150MG/ML
     Route: 058
     Dates: start: 20230621
  2. SKYRIZI [Suspect]
     Active Substance: RISANKIZUMAB-RZAA
     Dosage: TIME INTERVAL: TOTAL: DOSAGE: 150 MG/ML WEEK ZERO?FORM STRENGTH:150MG/ML
     Route: 058
     Dates: start: 20230524, end: 20230524

REACTIONS (5)
  - Small intestinal obstruction [Recovered/Resolved]
  - Hypoaesthesia [Unknown]
  - Myalgia [Not Recovered/Not Resolved]
  - Back pain [Not Recovered/Not Resolved]
  - Throat tightness [Unknown]

NARRATIVE: CASE EVENT DATE: 20230101
